FAERS Safety Report 6928424-9 (Version None)
Quarter: 2010Q3

REPORT INFORMATION
  Report Type: 
  Country: None (occurrence: None)
  Receive Date: 20100817
  Receipt Date: 20100805
  Transmission Date: 20110219
  Serious: Yes (Other)
  Sender: FDA-Public Use
  Company Number: BR-PFIZER INC-2010101445

PATIENT

DRUGS (1)
  1. SERTRALINE HYDROCHLORIDE [Suspect]
     Indication: OBESITY
     Dosage: MEAN DOSE (FOR 10 PATIENTS): 116.7 +/- 25.8 MG

REACTIONS (1)
  - BIPOLAR DISORDER [None]
